FAERS Safety Report 13924045 (Version 1)
Quarter: 2017Q3

REPORT INFORMATION
  Report Type: Spontaneous
  Country: US (occurrence: US)
  Receive Date: 20170831
  Receipt Date: 20170831
  Transmission Date: 20171127
  Serious: Yes (Other)
  Sender: FDA-Public Use
  Company Number: PHEH2017US027690

PATIENT
  Sex: Male

DRUGS (2)
  1. KEPPRA [Suspect]
     Active Substance: LEVETIRACETAM
     Indication: PARTIAL SEIZURES
     Dosage: UNK
     Route: 065
  2. TRILEPTAL [Suspect]
     Active Substance: OXCARBAZEPINE
     Indication: PARTIAL SEIZURES
     Dosage: UNK
     Route: 065

REACTIONS (3)
  - Epileptic aura [Unknown]
  - Irritability [Unknown]
  - Focal dyscognitive seizures [Unknown]
